FAERS Safety Report 15919731 (Version 1)
Quarter: 2019Q1

REPORT INFORMATION
  Report Type: Spontaneous
  Country: US (occurrence: US)
  Receive Date: 20190205
  Receipt Date: 20190205
  Transmission Date: 20190417
  Serious: No
  Sender: FDA-Public Use
  Company Number: US-ROCHE-2120750

PATIENT
  Sex: Female

DRUGS (15)
  1. SUCRALFATE. [Concomitant]
     Active Substance: SUCRALFATE
  2. EPIPEN [Concomitant]
     Active Substance: EPINEPHRINE
     Route: 065
  3. SYMBICORT [Concomitant]
     Active Substance: BUDESONIDE\FORMOTEROL FUMARATE DIHYDRATE
     Dosage: DOSE:160-4.5 (UNIT NOT REPORTED)
     Route: 065
  4. XOLAIR [Suspect]
     Active Substance: OMALIZUMAB
     Indication: ASTHMA
     Dosage: ONGOING: YES
     Route: 058
     Dates: start: 20161014
  5. LEUCOVORIN. [Concomitant]
     Active Substance: LEUCOVORIN
     Route: 065
  6. DEXILANT [Concomitant]
     Active Substance: DEXLANSOPRAZOLE
     Route: 065
  7. SPIRIVA [Concomitant]
     Active Substance: TIOTROPIUM BROMIDE MONOHYDRATE
  8. HYDROCHLOROTHIAZIDE. [Concomitant]
     Active Substance: HYDROCHLOROTHIAZIDE
  9. VICTOZA [Concomitant]
     Active Substance: LIRAGLUTIDE
     Dosage: 18MG/3ML
     Route: 065
  10. CEFUROXIME. [Concomitant]
     Active Substance: CEFUROXIME
     Route: 065
  11. VITAMIN B12 [Concomitant]
     Active Substance: CYANOCOBALAMIN
     Route: 065
  12. FOLIC ACID. [Concomitant]
     Active Substance: FOLIC ACID
     Route: 065
  13. FUROSEMIDE. [Concomitant]
     Active Substance: FUROSEMIDE
     Route: 065
  14. IPRATROPIUM [Concomitant]
     Active Substance: IPRATROPIUM
     Route: 065
  15. LANTUS [Concomitant]
     Active Substance: INSULIN GLARGINE
     Dosage: 100/ML
     Route: 065

REACTIONS (1)
  - Accident [Unknown]
